FAERS Safety Report 17147165 (Version 2)
Quarter: 2020Q2

REPORT INFORMATION
  Report Type: Report from Study
  Country: CA (occurrence: CA)
  Receive Date: 20191212
  Receipt Date: 20200423
  Transmission Date: 20200713
  Serious: Yes (Other)
  Sender: FDA-Public Use
  Company Number: CA-BRISTOL-MYERS SQUIBB COMPANY-BMS-2019-115877

PATIENT
  Age: 75 Year
  Sex: Female

DRUGS (1)
  1. ABATACEPT [Suspect]
     Active Substance: ABATACEPT
     Indication: RHEUMATOID ARTHRITIS
     Dosage: 125 MILLIGRAM, QWK
     Route: 058
     Dates: start: 20190820

REACTIONS (8)
  - Rash [Recovering/Resolving]
  - Sinusitis [Recovering/Resolving]
  - Asthenia [Recovering/Resolving]
  - Nasopharyngitis [Unknown]
  - Glaucoma [Recovering/Resolving]
  - Rash pruritic [Recovering/Resolving]
  - Circumstance or information capable of leading to medication error [Recovering/Resolving]
  - Eye allergy [Unknown]

NARRATIVE: CASE EVENT DATE: 202003
